FAERS Safety Report 11884771 (Version 4)
Quarter: 2016Q1

REPORT INFORMATION
  Report Type: Report from Study
  Country: DE (occurrence: DE)
  Receive Date: 20160104
  Receipt Date: 20160126
  Transmission Date: 20160526
  Serious: Yes (Hospitalization)
  Sender: FDA-Public Use
  Company Number: DE-ROCHE-1674780

PATIENT
  Sex: Female

DRUGS (19)
  1. RITUXIMAB [Suspect]
     Active Substance: RITUXIMAB
     Indication: B-CELL LYMPHOMA
     Dosage: MOST RECENT DOSE 17/DEC/2015 (CYCLE 2)?MOST RECENT DOSE 05/JAN/2016 (CYCLE 3)
     Route: 042
     Dates: start: 20151126
  2. PREDNISONE. [Suspect]
     Active Substance: PREDNISONE
     Indication: B-CELL LYMPHOMA
     Dosage: MOST RECENT DOSE 22/DEC/2015 (CYCLE 2) ?MOST RECENT DOSE 06/JAN/2016 (CYCLE 3)
     Route: 048
     Dates: start: 20151127
  3. ALLOPURINOL. [Concomitant]
     Active Substance: ALLOPURINOL
     Indication: HYPERURICAEMIA
     Route: 048
  4. TORASEMID [Concomitant]
     Active Substance: TORSEMIDE
     Indication: HYPERTENSION
     Route: 048
  5. PEGFILGRASTIM [Suspect]
     Active Substance: PEGFILGRASTIM
     Indication: B-CELL LYMPHOMA
     Dosage: LAST DOSE 22/DEC/2015?LAST DOSE 10/JAN/2016
     Route: 058
     Dates: start: 20151201
  6. VINCRISTINE [Suspect]
     Active Substance: VINCRISTINE
     Indication: B-CELL LYMPHOMA
     Dosage: MOST RECENT DOSE 18/DEC/2015 (CYCLE 2)?MOST RECENT DOSE 06/JAN/2016 (CYCLE 3)
     Route: 042
     Dates: start: 20151127
  7. BISOPROLOL [Concomitant]
     Active Substance: BISOPROLOL
     Indication: HYPERTENSION
     Route: 048
  8. METAMIZOLE SODIUM [Concomitant]
     Active Substance: METAMIZOLE SODIUM
     Indication: PROPHYLAXIS
     Route: 048
  9. FUROSEMIDE/SPIRONOLACTONE [Concomitant]
     Active Substance: FUROSEMIDE\SPIRONOLACTONE
     Indication: OEDEMA
     Dosage: 50/20 MG, 1*/D 1/2
     Route: 065
  10. LISINOPRIL. [Concomitant]
     Active Substance: LISINOPRIL
     Indication: HYPERTENSION
     Route: 048
  11. ACETYLSALICYLIC ACID [Concomitant]
     Active Substance: ASPIRIN
     Indication: STENT PLACEMENT
     Route: 048
  12. IBUPROFEN. [Concomitant]
     Active Substance: IBUPROFEN
     Indication: PAIN
     Route: 048
  13. PANTOPRAZOL NATRIUM [Concomitant]
     Indication: PROPHYLAXIS
     Route: 048
  14. DOXORUBICIN [Suspect]
     Active Substance: DOXORUBICIN
     Indication: B-CELL LYMPHOMA
     Dosage: MOST RECENT DOSE 18/DEC/2015 (CYCLE 2)?MOST RECENT DOSE 06/JAN/2016 (CYCLE 3)
     Route: 042
     Dates: start: 20151127
  15. AMLODIPINE [Concomitant]
     Active Substance: AMLODIPINE BESYLATE
     Indication: HYPERTENSION
     Route: 048
  16. HYDROCHLOROTHIAZID [Concomitant]
     Active Substance: HYDROCHLOROTHIAZIDE
     Indication: HYPERTENSION
     Route: 048
  17. SIMVASTATIN. [Concomitant]
     Active Substance: SIMVASTATIN
     Indication: HYPERCHOLESTEROLAEMIA
     Route: 048
  18. LATANOPROST. [Concomitant]
     Active Substance: LATANOPROST
     Indication: INTRAOCULAR PRESSURE INCREASED
     Route: 047
  19. CYCLOPHOSPHAMIDE. [Suspect]
     Active Substance: CYCLOPHOSPHAMIDE
     Indication: B-CELL LYMPHOMA
     Dosage: MOST RECENT DOSE 18/DEC/2015 (CYCLE 2)?MOST RECENT DOSE 06/JAN/2016 (CYCLE 3)
     Route: 042
     Dates: start: 20151127

REACTIONS (4)
  - Acute kidney injury [Recovered/Resolved]
  - Fall [Unknown]
  - Infection [Recovered/Resolved]
  - Neutropenic infection [Recovered/Resolved]

NARRATIVE: CASE EVENT DATE: 20151207
